FAERS Safety Report 14342127 (Version 2)
Quarter: 2018Q3

REPORT INFORMATION
  Report Type: Spontaneous
  Country: FR (occurrence: FR)
  Receive Date: 20180102
  Receipt Date: 20180828
  Transmission Date: 20181010
  Serious: Yes (Other)
  Sender: FDA-Public Use
  Company Number: FR-GLAXOSMITHKLINE-FR2017199826

PATIENT
  Sex: Female

DRUGS (4)
  1. KIVEXA [Suspect]
     Active Substance: ABACAVIR SULFATE\LAMIVUDINE
     Indication: HIV INFECTION
     Dosage: UNK
     Route: 065
     Dates: start: 20160501, end: 20170129
  2. PREZISTA [Suspect]
     Active Substance: DARUNAVIR ETHANOLATE
     Indication: HIV INFECTION
     Dosage: UNK
     Route: 048
     Dates: start: 20160501, end: 20170129
  3. NORVIR [Suspect]
     Active Substance: RITONAVIR
     Indication: HIV INFECTION
     Dosage: 1 TAB, QD
     Route: 065
     Dates: start: 20160501, end: 20170129
  4. REYATAZ [Suspect]
     Active Substance: ATAZANAVIR SULFATE
     Indication: HIV INFECTION
     Dosage: UNK
     Route: 065
     Dates: start: 20160501, end: 20170129

REACTIONS (4)
  - Maternal exposure during pregnancy [Recovered/Resolved]
  - Oligohydramnios [Unknown]
  - Caesarean section [Unknown]
  - Live birth [Unknown]

NARRATIVE: CASE EVENT DATE: 20170129
